FAERS Safety Report 9126112 (Version 1)
Quarter: 2013Q1

REPORT INFORMATION
  Report Type: Spontaneous
  Country: JP (occurrence: JP)
  Receive Date: 20130117
  Receipt Date: 20130117
  Transmission Date: 20140127
  Serious: Yes (Other)
  Sender: FDA-Public Use
  Company Number: JP-MYLANLABS-2013S1000743

PATIENT
  Age: 31 Year
  Sex: Male

DRUGS (7)
  1. ALLOPURINOL [Suspect]
     Indication: HYPERURICAEMIA
     Route: 065
  2. ETHAMBUTOL [Suspect]
     Indication: TUBERCULOSIS
     Route: 065
  3. ISONIAZID [Suspect]
     Indication: TUBERCULOSIS
     Route: 065
  4. RIFAMPICIN [Suspect]
     Indication: TUBERCULOSIS
     Route: 065
  5. PYRAZINAMIDE [Suspect]
     Indication: TUBERCULOSIS
     Route: 065
  6. LEVOFLOXACIN [Suspect]
     Indication: TUBERCULOSIS
     Route: 065
  7. ETHIONAMIDE [Suspect]
     Indication: TUBERCULOSIS
     Route: 065

REACTIONS (2)
  - Drug reaction with eosinophilia and systemic symptoms [Unknown]
  - Drug hypersensitivity [Unknown]
